FAERS Safety Report 19156700 (Version 1)
Quarter: 2021Q2

REPORT INFORMATION
  Report Type: Spontaneous
  Country: US (occurrence: US)
  Receive Date: 20210420
  Receipt Date: 20210420
  Transmission Date: 20210717
  Serious: No
  Sender: FDA-Public Use
  Company Number: US-MSNLABS-2021MSNSPO00100

PATIENT

DRUGS (6)
  1. ONDANSETRON [Concomitant]
     Active Substance: ONDANSETRON
     Indication: PRODUCT USED FOR UNKNOWN INDICATION
     Route: 065
  2. COMPAZINE [Concomitant]
     Active Substance: PROCHLORPERAZINE MALEATE
     Indication: PRODUCT USED FOR UNKNOWN INDICATION
     Route: 065
  3. LEVOTHYROXINE. [Concomitant]
     Active Substance: LEVOTHYROXINE
     Indication: PRODUCT USED FOR UNKNOWN INDICATION
     Route: 065
  4. CAPECITABINE TABLETS 500 MG [Suspect]
     Active Substance: CAPECITABINE
     Dosage: BELOW 1500 MG
     Route: 048
     Dates: end: 20210312
  5. CAPECITABINE TABLETS 500 MG [Suspect]
     Active Substance: CAPECITABINE
     Indication: BREAST CANCER STAGE II
     Route: 048
     Dates: start: 20210127, end: 20210131
  6. CAPECITABINE TABLETS 500 MG [Suspect]
     Active Substance: CAPECITABINE
     Dosage: REDUCED DOSE
     Route: 048

REACTIONS (9)
  - Product dose omission issue [Unknown]
  - Vomiting [Unknown]
  - Heart rate increased [Unknown]
  - Dyspnoea [Unknown]
  - Disturbance in attention [Unknown]
  - Self-medication [Unknown]
  - Nausea [Unknown]
  - Vertigo [Unknown]
  - Feeling abnormal [Unknown]

NARRATIVE: CASE EVENT DATE: 20210131
